FAERS Safety Report 8832735 (Version 1)
Quarter: 2012Q4

REPORT INFORMATION
  Report Type: 
  Country: US (occurrence: US)
  Receive Date: 20121010
  Receipt Date: 20121010
  Transmission Date: 20130627
  Serious: Yes (Other)
  Sender: FDA-Public Use
  Company Number: US-BIOGENIDEC-2012BI041891

PATIENT
  Sex: Female

DRUGS (1)
  1. AVONEX [Suspect]
     Indication: MULTIPLE SCLEROSIS
     Route: 030

REACTIONS (9)
  - Coronary artery occlusion [Unknown]
  - Influenza [Unknown]
  - Fear [Unknown]
  - Optic neuritis [Unknown]
  - Frustration [Unknown]
  - Overweight [Unknown]
  - Cardiac disorder [Unknown]
  - Asthenia [Unknown]
  - Feeling abnormal [Unknown]
